FAERS Safety Report 16691932 (Version 2)
Quarter: 2019Q3

REPORT INFORMATION
  Report Type: Report from Study
  Country: AU (occurrence: AU)
  Receive Date: 20190812
  Receipt Date: 20190823
  Transmission Date: 20191004
  Serious: Yes (Death)
  Sender: FDA-Public Use
  Company Number: AU-ACTELION-A-CH2019-194112

PATIENT
  Age: 70 Year
  Sex: Male

DRUGS (15)
  1. BISOPROLOL [Concomitant]
     Active Substance: BISOPROLOL
  2. DIPHENOXYLATE HCL + ATROPINE SULFATE [Concomitant]
     Active Substance: ATROPINE SULFATE\DIPHENOXYLATE HYDROCHLORIDE
  3. ESCITALOPRAM [Concomitant]
     Active Substance: ESCITALOPRAM OXALATE
  4. CALCITAROL [Concomitant]
  5. TADALAFIL. [Suspect]
     Active Substance: TADALAFIL
     Indication: PULMONARY ARTERIAL HYPERTENSION
     Dosage: 20 MG, BID
     Route: 048
     Dates: start: 20170106, end: 20190805
  6. ATORVASTATIN [Concomitant]
     Active Substance: ATORVASTATIN
  7. CLOPIDOGREL [Concomitant]
     Active Substance: CLOPIDOGREL BISULFATE
  8. FEFOL [Concomitant]
     Active Substance: FERROUS SULFATE\FOLIC ACID
  9. OPSUMIT [Suspect]
     Active Substance: MACITENTAN
     Indication: PULMONARY ARTERIAL HYPERTENSION
     Dosage: 10 MG, QD
     Route: 048
     Dates: start: 201502, end: 20190805
  10. ALLOPURINOL. [Concomitant]
     Active Substance: ALLOPURINOL
  11. FRUSEMIDE [Concomitant]
     Active Substance: FUROSEMIDE
  12. PANTOPRAZOLE [Concomitant]
     Active Substance: PANTOPRAZOLE
  13. THIAMINE. [Concomitant]
     Active Substance: THIAMINE
  14. PERINDOPRIL [Concomitant]
     Active Substance: PERINDOPRIL
  15. ASPIRIN. [Concomitant]
     Active Substance: ASPIRIN

REACTIONS (2)
  - Cardiac failure [Fatal]
  - Renal failure [Fatal]

NARRATIVE: CASE EVENT DATE: 201901
